FAERS Safety Report 20510289 (Version 3)
Quarter: 2022Q2

REPORT INFORMATION
  Report Type: Spontaneous
  Country: CN (occurrence: CN)
  Receive Date: 20220224
  Receipt Date: 20220413
  Transmission Date: 20220720
  Serious: Yes (Hospitalization)
  Sender: FDA-Public Use
  Company Number: CN-NOVOPROD-880061

PATIENT
  Age: 53 Year
  Sex: Male
  Weight: 73 kg

DRUGS (1)
  1. NOVOLIN R [Suspect]
     Active Substance: INSULIN HUMAN
     Indication: Type 2 diabetes mellitus
     Dosage: 60 IU, QD (32 U IN THE MORNING AND 28 U IN THE EVENING)
     Route: 065
     Dates: start: 20211215

REACTIONS (4)
  - Application site acne [Recovered/Resolved]
  - Injection site pain [Recovered/Resolved]
  - Blood glucose increased [Recovered/Resolved]
  - Product deposit [Unknown]

NARRATIVE: CASE EVENT DATE: 20211216
